FAERS Safety Report 4882037-1 (Version None)
Quarter: 2006Q1

REPORT INFORMATION
  Report Type: 
  Country: None (occurrence: None)
  Receive Date: 20060112
  Receipt Date: 20060103
  Transmission Date: 20060701
  Serious: Yes (Hospitalization)
  Sender: FDA-Public Use
  Company Number: 2006003907

PATIENT
  Age: 84 Year
  Sex: Female

DRUGS (12)
  1. AMLODIPINE [Suspect]
     Indication: ILL-DEFINED DISORDER
     Dosage: 1 DOSE FORM (1 IN 1 D), ORAL
     Route: 048
     Dates: end: 20051020
  2. PAROXETINE HYDROCHLORIDE [Suspect]
     Indication: ILL-DEFINED DISORDER
     Dosage: 20 MG (20 MG, 1 IN 1 D), ORAL
     Route: 048
     Dates: end: 20051020
  3. TRIMETAZIDINE (TRIMETAZIDINE) [Suspect]
     Indication: ILL-DEFINED DISORDER
     Dosage: 3 DOSE FORMS (3 IN 1 D), ORAL
     Route: 048
     Dates: end: 20051020
  4. TRIVASTAL (PIRIBEDIL) [Suspect]
     Indication: ILL-DEFINED DISORDER
     Dosage: 1 DOSE FORM (1 IN 1 D),  ORAL
     Route: 048
     Dates: end: 20051020
  5. RISPERDAL [Suspect]
     Indication: ILL-DEFINED DISORDER
     Dosage: 1.5 MG (1 IN 1 D), ORAL
     Route: 048
     Dates: end: 20051020
  6. TANAKAN (GINKGO BILOBA EXTRACT) [Suspect]
     Indication: ILL-DEFINED DISORDER
     Dosage: 120 MG (40 MG, TID), ORAL
     Route: 048
     Dates: end: 20051020
  7. EPHYNAL [Concomitant]
  8. STRESAM (ETIFOXINE) [Concomitant]
  9. MEPROBAMATE [Concomitant]
  10. ACEPROMETAZINE (ACEPROMETAZINE) [Concomitant]
  11. RELVENE (RUTOSIDE) [Concomitant]
  12. LECTIL (BETAHISTINE HYDROCHLORIDE) [Concomitant]

REACTIONS (1)
  - FALL [None]
